FAERS Safety Report 9625030 (Version 1)
Quarter: 2013Q4

REPORT INFORMATION
  Report Type: Spontaneous
  Country: US (occurrence: US)
  Receive Date: 20131016
  Receipt Date: 20131016
  Transmission Date: 20140711
  Serious: Yes (Other)
  Sender: FDA-Public Use
  Company Number: US-AMGEN-USASP2013071207

PATIENT
  Age: 54 Year
  Sex: Female

DRUGS (3)
  1. PROLIA [Suspect]
     Indication: OSTEOPOROSIS POSTMENOPAUSAL
     Dosage: 60 MG, UNK
     Route: 065
     Dates: start: 20121228
  2. CALCIUM W/VITAMIN D                /00944201/ [Concomitant]
     Dosage: 4 DF(CALCIUM 200 MG/VITAMIN 400MG), TID
  3. ANALGESICS [Concomitant]

REACTIONS (7)
  - Spinal disorder [Unknown]
  - Injection site mass [Recovered/Resolved]
  - Injection site pain [Unknown]
  - Pain [Unknown]
  - Nerve injury [Unknown]
  - Tooth disorder [Unknown]
  - Pain in extremity [Unknown]
